FAERS Safety Report 4453984-X (Version None)
Quarter: 2004Q3

REPORT INFORMATION
  Report Type: 
  Country: None (occurrence: None)
  Receive Date: 20040920
  Receipt Date: 20040908
  Transmission Date: 20050211
  Serious: Yes (Other)
  Sender: FDA-Public Use
  Company Number: AU-GLAXOSMITHKLINE-B0345517A

PATIENT
  Sex: Female

DRUGS (3)
  1. LAMICTAL [Suspect]
     Indication: EPILEPSY
     Dosage: 250MG PER DAY
     Route: 048
     Dates: start: 19980601
  2. MYSOLINE [Concomitant]
     Indication: TREMOR
  3. VALPROIC ACID [Concomitant]
     Indication: EPILEPSY

REACTIONS (2)
  - OPTIC NEURITIS [None]
  - VISION BLURRED [None]
